FAERS Safety Report 7673553-8 (Version None)
Quarter: 2011Q3

REPORT INFORMATION
  Report Type: 
  Country: None (occurrence: None)
  Receive Date: 20110810
  Receipt Date: 20110727
  Transmission Date: 20111222
  Serious: Yes (Hospitalization, Other)
  Sender: FDA-Public Use
  Company Number: CA-ELI_LILLY_AND_COMPANY-CA201105007721

PATIENT
  Age: 91 Year
  Sex: Female
  Weight: 47 kg

DRUGS (14)
  1. SYNTHROID [Concomitant]
     Dosage: UNK, UNKNOWN
     Route: 065
  2. COUMADIN [Concomitant]
     Dosage: UNK, UNKNOWN
     Route: 065
  3. VITAMIN D [Concomitant]
     Dosage: UNK, UNKNOWN
     Route: 065
  4. CELEXA [Concomitant]
     Dosage: UNK, UNKNOWN
     Route: 065
  5. FORTEO [Suspect]
     Indication: OSTEOPOROSIS
     Dosage: 20 UG, QD
     Route: 058
     Dates: start: 20110415, end: 20110523
  6. ADVAIR DISKUS 100/50 [Concomitant]
     Dosage: UNK, UNKNOWN
     Route: 065
  7. MULTI-VITAMIN [Concomitant]
     Dosage: UNK, UNKNOWN
     Route: 065
  8. BISOPROLOL FUMARATE [Concomitant]
     Dosage: UNK, UNKNOWN
     Route: 065
  9. PALAFER [Concomitant]
     Indication: IRON DEFICIENCY ANAEMIA
  10. SPIRONOLACTONE [Concomitant]
     Dosage: UNK, UNKNOWN
     Route: 065
  11. ALTACE [Concomitant]
     Dosage: UNK, UNKNOWN
     Route: 065
  12. DIGOXIN [Concomitant]
     Dosage: UNK, UNKNOWN
     Route: 065
  13. LASIX [Concomitant]
  14. PREVACID [Concomitant]
     Dosage: UNK, UNKNOWN
     Route: 065

REACTIONS (6)
  - DIARRHOEA [None]
  - SINUS BRADYCARDIA [None]
  - FATIGUE [None]
  - IRON DEFICIENCY ANAEMIA [None]
  - TOXICITY TO VARIOUS AGENTS [None]
  - DIZZINESS [None]
